FAERS Safety Report 7975083-2 (Version None)
Quarter: 2011Q4

REPORT INFORMATION
  Report Type: 
  Country: None (occurrence: None)
  Receive Date: 20111213
  Receipt Date: 20111028
  Transmission Date: 20120403
  Serious: No
  Sender: FDA-Public Use
  Company Number: US-AMGEN-USASP2011055985

PATIENT
  Age: 62 Year
  Sex: Female

DRUGS (2)
  1. ENBREL [Suspect]
     Indication: PSORIATIC ARTHROPATHY
     Dosage: 50 MG, QWK
     Dates: start: 20000101, end: 20110401
  2. ENBREL [Suspect]
     Indication: PSORIASIS

REACTIONS (3)
  - POOR QUALITY SLEEP [None]
  - PAIN IN EXTREMITY [None]
  - ARTHRALGIA [None]
